FAERS Safety Report 20096393 (Version 1)
Quarter: 2021Q4

REPORT INFORMATION
  Report Type: Spontaneous
  Country: US (occurrence: None)
  Receive Date: 20211119
  Receipt Date: 20211119
  Transmission Date: 20220303
  Serious: Yes (Other)
  Sender: FDA-Public Use
  Company Number: None

PATIENT
  Age: 54 Year
  Sex: Female

DRUGS (1)
  1. ISOVUE 300 [Suspect]
     Active Substance: IOPAMIDOL
     Dosage: FREQUENCY : AS NEEDED;?
     Route: 042

REACTIONS (4)
  - Sneezing [None]
  - Erythema [None]
  - Rash macular [None]
  - Dyspnoea [None]

NARRATIVE: CASE EVENT DATE: 20211115
